FAERS Safety Report 6879340-2 (Version None)
Quarter: 2010Q3

REPORT INFORMATION
  Report Type: 
  Country: None (occurrence: None)
  Receive Date: 20100728
  Receipt Date: 20100712
  Transmission Date: 20110219
  Serious: Yes (Hospitalization)
  Sender: FDA-Public Use
  Company Number: US-BRISTOL-MYERS SQUIBB COMPANY-15182231

PATIENT
  Age: 58 Year
  Sex: Male
  Weight: 86 kg

DRUGS (19)
  1. CETUXIMAB [Suspect]
     Indication: NON-SMALL CELL LUNG CANCER METASTATIC
     Dosage: RECENT INF:18JUN10,NO OF INF:5.
     Route: 042
     Dates: start: 20100521, end: 20100618
  2. CISPLATIN [Suspect]
     Indication: NON-SMALL CELL LUNG CANCER METASTATIC
     Dosage: RECENT INF:18JUN10,NO OF INF:2.
     Route: 042
     Dates: start: 20100524, end: 20100618
  3. GEMCITABINE [Suspect]
     Indication: NON-SMALL CELL LUNG CANCER METASTATIC
     Dosage: RECENT INF:18JUN10,NO OF INF:3.
     Route: 042
     Dates: start: 20100521, end: 20100618
  4. K-DUR [Concomitant]
     Route: 065
  5. LASIX [Concomitant]
     Route: 065
  6. OXYCONTIN [Concomitant]
     Dosage: DOSAGE:2-3 HRS AS NEEDED.
     Route: 065
  7. ATIVAN [Concomitant]
     Dosage: DOSAGE:PER 6 HR AS NEEDED.
     Route: 065
  8. COLACE [Concomitant]
     Dosage: DOSAGE:2 IN 1 DAY PRN.
     Route: 065
  9. MIRALAX [Concomitant]
     Route: 065
  10. ZOFRAN [Concomitant]
     Dosage: DOSAGE: PER 8 HR/PRN.
     Route: 065
  11. COMPAZINE [Concomitant]
     Dosage: DOSAGE:PER 8HR/PRN.
     Route: 065
  12. LIPITOR [Concomitant]
     Indication: HYPERLIPIDAEMIA
     Route: 065
  13. ZETIA [Concomitant]
     Indication: HYPERLIPIDAEMIA
     Route: 065
  14. MULTI-VITAMINS [Concomitant]
     Route: 065
  15. ACETAMINOPHEN AND HYDROCODONE BITARTRATE [Concomitant]
     Dosage: 1 DF:1-2 TABS 4-6HRS AS NEEDED.
     Route: 065
  16. ORAMORPH SR [Concomitant]
     Route: 065
  17. AMBIEN [Concomitant]
     Dosage: DOSAGE:AT NIGHT DAILY.
     Route: 065
  18. LOVENOX [Concomitant]
     Route: 058
  19. KEFLEX [Concomitant]
     Indication: CELLULITIS
     Route: 065
     Dates: start: 20100601, end: 20100601

REACTIONS (2)
  - DYSPNOEA [None]
  - PLEURAL EFFUSION [None]
